FAERS Safety Report 9911272 (Version 1)
Quarter: 2014Q1

REPORT INFORMATION
  Report Type: Spontaneous
  Country: FR (occurrence: FR)
  Receive Date: 20140219
  Receipt Date: 20140219
  Transmission Date: 20141002
  Serious: Yes (Other)
  Sender: FDA-Public Use
  Company Number: FR-B.I. PHARMACEUTICALS,INC./RIDGEFIELD-2014-BI-06906FF

PATIENT
  Age: 49 Year
  Sex: Male

DRUGS (8)
  1. APTIVUS [Suspect]
     Indication: HIV INFECTION
     Route: 048
     Dates: start: 20080220
  2. FUZEON [Suspect]
     Indication: HIV INFECTION
     Dates: start: 20080220, end: 20090324
  3. LEVOCARNIL [Suspect]
     Indication: PRODUCT USED FOR UNKNOWN INDICATION
     Route: 048
  4. BACTRIM [Suspect]
     Indication: PROPHYLAXIS
     Route: 048
  5. LOPERAMIDE BASE [Suspect]
     Indication: DIARRHOEA
     Route: 048
  6. INEGY [Suspect]
     Indication: HYPERCHOLESTEROLAEMIA
     Route: 048
     Dates: end: 200812
  7. NORVIR [Suspect]
     Indication: HIV INFECTION
     Route: 048
     Dates: start: 20051005
  8. TRUVADA [Suspect]
     Indication: PRODUCT USED FOR UNKNOWN INDICATION
     Route: 048
     Dates: start: 20080220

REACTIONS (1)
  - Colour blindness acquired [Unknown]
